FAERS Safety Report 16895997 (Version 1)
Quarter: 2019Q4

REPORT INFORMATION
  Report Type: Spontaneous
  Country: US (occurrence: US)
  Receive Date: 20191008
  Receipt Date: 20191008
  Transmission Date: 20200122
  Serious: No
  Sender: FDA-Public Use
  Company Number: US-PERRIGO-19US008958

PATIENT
  Age: 73 Year
  Sex: Female
  Weight: 51.25 kg

DRUGS (3)
  1. ERYTHROMYCIN. [Suspect]
     Active Substance: ERYTHROMYCIN
     Indication: PROPHYLAXIS
     Dosage: SMALL AMOUNT, 2 TIMES A DAY
     Route: 061
     Dates: start: 201907, end: 201907
  2. ERYTHROMYCIN. [Suspect]
     Active Substance: ERYTHROMYCIN
     Dosage: SMALL AMOUNT, 4 TIMES A DAY
     Route: 061
     Dates: start: 201907, end: 201907
  3. ERYTHROMYCIN. [Suspect]
     Active Substance: ERYTHROMYCIN
     Dosage: SMALL AMOUNT, 3 TIMES A DAY
     Route: 061
     Dates: start: 201907, end: 201907

REACTIONS (3)
  - Off label use [Recovered/Resolved]
  - Eye pain [Recovered/Resolved]
  - Eye pruritus [Recovered/Resolved]

NARRATIVE: CASE EVENT DATE: 201907
